FAERS Safety Report 18843974 (Version 1)
Quarter: 2021Q1

REPORT INFORMATION
  Report Type: Spontaneous
  Country: NL (occurrence: NL)
  Receive Date: 20210203
  Receipt Date: 20210203
  Transmission Date: 20210419
  Serious: No
  Sender: FDA-Public Use
  Company Number: NL-EXELIXIS-CABO-20029410

PATIENT
  Age: 78 Year
  Sex: Female
  Weight: 55 kg

DRUGS (5)
  1. FUNGIZONE [Concomitant]
     Active Substance: AMPHOTERICIN B
     Dosage: SUSPENSIE, 100 MG/ML (MILLIGRAM PER MILLILITER)
  2. TOLBUTAMIDE. [Concomitant]
     Active Substance: TOLBUTAMIDE
     Dosage: TABLET, 500 MG (MILLIGRAM)
  3. LEVOTHYROXINE SODIUM. [Concomitant]
     Active Substance: LEVOTHYROXINE SODIUM
     Dosage: TABLET, 75 ?G
  4. METOPROLOL. [Concomitant]
     Active Substance: METOPROLOL
     Dosage: 50 MG
  5. COMETRIQ [Suspect]
     Active Substance: CABOZANTINIB S-MALATE
     Indication: METASTATIC RENAL CELL CARCINOMA
     Dosage: 20 MG, QD (1X PER DAG 1 STUK)
     Dates: start: 20190923, end: 20200407

REACTIONS (1)
  - Cytomegalovirus oesophagitis [Not Recovered/Not Resolved]

NARRATIVE: CASE EVENT DATE: 20200210
